FAERS Safety Report 13346673 (Version 2)
Quarter: 2017Q2

REPORT INFORMATION
  Report Type: Report from Study
  Country: US (occurrence: US)
  Receive Date: 20170317
  Receipt Date: 20170421
  Transmission Date: 20170830
  Serious: Yes (Hospitalization)
  Sender: FDA-Public Use
  Company Number: US-EISAI MEDICAL RESEARCH-EC-2017-024595

PATIENT
  Age: 60 Year
  Sex: Female
  Weight: 88 kg

DRUGS (2)
  1. AFINITOR [Concomitant]
     Active Substance: EVEROLIMUS
     Indication: RENAL CELL CARCINOMA
     Route: 048
     Dates: start: 20170131, end: 20170302
  2. LENVIMA [Suspect]
     Active Substance: LENVATINIB
     Indication: RENAL CANCER
     Route: 048
     Dates: start: 20170131, end: 20170302

REACTIONS (14)
  - Lethargy [Recovered/Resolved]
  - Rash [Unknown]
  - Nasal congestion [Recovered/Resolved]
  - Cough [Recovered/Resolved]
  - Dehydration [Recovered/Resolved]
  - Vomiting [Recovered/Resolved]
  - Hypertension [Not Recovered/Not Resolved]
  - Decreased appetite [Recovered/Resolved]
  - Fatigue [Unknown]
  - Dysphagia [Recovered/Resolved]
  - Chest discomfort [Unknown]
  - Oral candidiasis [Recovered/Resolved]
  - Lower respiratory tract congestion [Recovered/Resolved]
  - Vulvovaginal candidiasis [Recovered/Resolved]

NARRATIVE: CASE EVENT DATE: 201701
